FAERS Safety Report 13869250 (Version 2)
Quarter: 2017Q3

REPORT INFORMATION
  Report Type: Spontaneous
  Country: JP (occurrence: JP)
  Receive Date: 20170815
  Receipt Date: 20170913
  Transmission Date: 20171127
  Serious: Yes (Other)
  Sender: FDA-Public Use
  Company Number: JP-SA-2017SA148843

PATIENT
  Age: 5 Year
  Sex: Female

DRUGS (5)
  1. LEVOCETIRIZINE [Suspect]
     Active Substance: LEVOCETIRIZINE
     Indication: URTICARIA
     Route: 048
     Dates: start: 20170729, end: 20170731
  2. BIOFERMIN R [Concomitant]
     Active Substance: BACILLUS SUBTILIS\LACTOBACILLUS ACIDOPHILUS\STREPTOCOCCUS FAECAIS
  3. BANAN [Suspect]
     Active Substance: CEFPODOXIME PROXETIL
     Indication: STREPTOCOCCAL INFECTION
     Route: 048
     Dates: start: 20170727, end: 20170728
  4. BANAN [Suspect]
     Active Substance: CEFPODOXIME PROXETIL
     Indication: STREPTOCOCCAL INFECTION
     Route: 048
     Dates: start: 20170725
  5. WIDECILLIN [Concomitant]
     Active Substance: AMOXICILLIN
     Route: 065

REACTIONS (1)
  - Arrhythmia [Recovered/Resolved]

NARRATIVE: CASE EVENT DATE: 20170731
